FAERS Safety Report 7212794-0 (Version None)
Quarter: 2011Q1

REPORT INFORMATION
  Report Type: 
  Country: None (occurrence: None)
  Receive Date: 20110106
  Receipt Date: 20101230
  Transmission Date: 20110831
  Serious: Yes (Death, Hospitalization)
  Sender: FDA-Public Use
  Company Number: ID-ROCHE-746250

PATIENT
  Age: 33 Month
  Sex: Male
  Weight: 10 kg

DRUGS (10)
  1. PROBIOTICA [Concomitant]
     Dosage: DRUG: LACTO B (PROBIOTIK)
     Dates: start: 20090322, end: 20090324
  2. CEFOTAXIM [Concomitant]
     Dosage: DRUG REPORTED AS CEFOTAXIN
     Dates: start: 20090314, end: 20090320
  3. VENTOLIN [Concomitant]
     Dates: start: 20090320
  4. TPN ELECTROLYTES IN PLASTIC CONTAINER [Concomitant]
     Dates: start: 20090320
  5. OSELTAMIVIR [Suspect]
     Indication: AVIAN INFLUENZA
     Route: 065
     Dates: start: 20090320, end: 20090326
  6. GENTAMICIN [Concomitant]
     Dates: start: 20090318
  7. METRONIDAZOLE [Concomitant]
     Dates: start: 20090320, end: 20090324
  8. MEROPENEM [Concomitant]
     Dates: start: 20090320, end: 20090324
  9. PARACETAMOL [Concomitant]
     Dosage: DRUG REPORTED AS PARACETAMOL/ ACETAMINOPHEN
     Dates: start: 20090320, end: 20090326
  10. RANITIDINE HCL [Concomitant]
     Dates: start: 20090320, end: 20100324

REACTIONS (3)
  - INFLUENZA [None]
  - PNEUMONIA [None]
  - RESPIRATORY FAILURE [None]
